FAERS Safety Report 5278017-7 (Version None)
Quarter: 2007Q1

REPORT INFORMATION
  Report Type: 
  Country: None (occurrence: None)
  Receive Date: 20070321
  Receipt Date: 20070309
  Transmission Date: 20070707
  Serious: Yes (Hospitalization)
  Sender: FDA-Public Use
  Company Number: RENA-12088

PATIENT
  Age: 70 Year
  Sex: Male

DRUGS (16)
  1. PHOSBLOCK 250 MG TABLETS [Suspect]
     Indication: HYPERPHOSPHATAEMIA
     Dosage: 0.25 G DAILY PO
     Route: 048
     Dates: start: 20061222
  2. WARFARIN POTASSIUM [Concomitant]
  3. ALLOPURINOL [Concomitant]
  4. PRAVASTATIN SODIUM [Concomitant]
  5. CALCIUM POLYSTYRENE SULFONATE [Concomitant]
  6. PANCREATIC ENZYME COMBINED DRUG 1 [Concomitant]
  7. SHAKUYAKU-KANZO-TO (PEONY AND LICORICE ROOT) [Concomitant]
  8. ZOLPIDEM TARTRATE [Concomitant]
  9. PRECIPITATED CALCIUM CARBONATE [Concomitant]
  10. SENNA LEAF / SENNA POD [Concomitant]
  11. SODIUM AZULENE SULFONATE / L-GLUTAMINE [Concomitant]
  12. SENNOSIDE [Concomitant]
  13. LOXOPROFEN SODIUM [Concomitant]
  14. AMEZIUM METILSULFATE [Concomitant]
  15. SODIUM PICOSULFATE [Concomitant]
  16. CARVEDILOL [Concomitant]

REACTIONS (14)
  - ACTIVATED PARTIAL THROMBOPLASTIN TIME PROLONGED [None]
  - BLOOD ALKALINE PHOSPHATASE INCREASED [None]
  - BLOOD CALCIUM DECREASED [None]
  - BLOOD CREATININE INCREASED [None]
  - BLOOD LACTATE DEHYDROGENASE INCREASED [None]
  - BLOOD PHOSPHORUS INCREASED [None]
  - BLOOD PRESSURE SYSTOLIC DECREASED [None]
  - GASTRITIS HAEMORRHAGIC [None]
  - GASTROINTESTINAL HAEMORRHAGE [None]
  - HAEMODIALYSIS [None]
  - HAEMOGLOBIN DECREASED [None]
  - HAEMORRHAGIC DIATHESIS [None]
  - MELAENA [None]
  - PROTHROMBIN TIME PROLONGED [None]
